FAERS Safety Report 5875738-X (Version None)
Quarter: 2008Q3

REPORT INFORMATION
  Report Type: 
  Country: None (occurrence: None)
  Receive Date: 20080905
  Receipt Date: 20080827
  Transmission Date: 20090109
  Serious: Yes (Other)
  Sender: FDA-Public Use
  Company Number: 2008AP002194

PATIENT
  Age: 57 Year
  Sex: Female

DRUGS (3)
  1. PAROXETINE HCL [Suspect]
     Indication: DEPRESSION
     Dosage: 40 MG; BID; PO, 30 MG; BID; PO
     Route: 048
  2. PAROXETINE HCL [Suspect]
     Indication: PANIC ATTACK
     Dosage: 40 MG; BID; PO, 30 MG; BID; PO
     Route: 048
  3. OLMESARTAN MEDOXOMIL [Concomitant]

REACTIONS (8)
  - COLON CANCER [None]
  - DRUG WITHDRAWAL SYNDROME [None]
  - FRUSTRATION [None]
  - MEMORY IMPAIRMENT [None]
  - PAIN [None]
  - PARAESTHESIA [None]
  - STRESS [None]
  - SWELLING [None]
